FAERS Safety Report 7400081-7 (Version None)
Quarter: 2011Q2

REPORT INFORMATION
  Report Type: 
  Country: None (occurrence: None)
  Receive Date: 20110407
  Receipt Date: 20100330
  Transmission Date: 20111010
  Serious: Yes (Other)
  Sender: FDA-Public Use
  Company Number: PHHY2010DE90786

PATIENT

DRUGS (1)
  1. EXTAVIA [Suspect]
     Route: 058

REACTIONS (4)
  - AGGRESSION [None]
  - DELUSION [None]
  - MULTIPLE SCLEROSIS RELAPSE [None]
  - NASOPHARYNGITIS [None]
